FAERS Safety Report 6146391-5 (Version None)
Quarter: 2009Q2

REPORT INFORMATION
  Report Type: 
  Country: None (occurrence: None)
  Receive Date: 20090403
  Receipt Date: 20090403
  Transmission Date: 20091009
  Serious: No
  Sender: FDA-Public Use
  Company Number: None

PATIENT
  Sex: Female
  Weight: 61.6892 kg

DRUGS (1)
  1. LEVAQUIN [Suspect]
     Indication: SINUSITIS
     Dosage: 500MG ONE TABLET/DAY 047
     Dates: start: 20090217, end: 20090228

REACTIONS (9)
  - ARTHRALGIA [None]
  - ARTHRITIS [None]
  - ERYTHEMA [None]
  - IMMOBILE [None]
  - IMPAIRED WORK ABILITY [None]
  - JOINT STIFFNESS [None]
  - JOINT SWELLING [None]
  - MOVEMENT DISORDER [None]
  - OEDEMA PERIPHERAL [None]
